FAERS Safety Report 10206693 (Version 3)
Quarter: 2014Q2

REPORT INFORMATION
  Report Type: Spontaneous
  Country: BR (occurrence: BR)
  Receive Date: 20140530
  Receipt Date: 20140626
  Transmission Date: 20141212
  Serious: Yes (Other)
  Sender: FDA-Public Use
  Company Number: BR-SA-2014SA033230

PATIENT
  Age: 60 Year
  Sex: Male
  Weight: 75 kg

DRUGS (2)
  1. JEVTANA [Suspect]
     Indication: PROSTATE CANCER
     Route: 042
     Dates: start: 20130822, end: 20140313
  2. ZOMETA [Concomitant]
     Indication: METASTASES TO BONE
     Route: 042
     Dates: start: 20111107, end: 20111107

REACTIONS (4)
  - Urinary retention [Recovering/Resolving]
  - Bladder neck obstruction [Recovering/Resolving]
  - Dysuria [Recovering/Resolving]
  - Genital pain [Recovering/Resolving]
